FAERS Safety Report 9438278 (Version 1)
Quarter: 2013Q3

REPORT INFORMATION
  Report Type: Spontaneous
  Country: US (occurrence: None)
  Receive Date: 20130802
  Receipt Date: 20130802
  Transmission Date: 20140515
  Serious: No
  Sender: FDA-Public Use
  Company Number: None

PATIENT
  Age: 73 Year
  Sex: Female

DRUGS (1)
  1. FORTEO [Suspect]
     Indication: OSTEOPOROSIS
     Dosage: 20MCG  ONCE DAILY  SQ
     Route: 058
     Dates: start: 20130614, end: 20130730

REACTIONS (4)
  - Pyrexia [None]
  - Rash [None]
  - Herpes zoster [None]
  - Paraplegia [None]
